FAERS Safety Report 8301069-4 (Version None)
Quarter: 2012Q2

REPORT INFORMATION
  Report Type: 
  Country: None (occurrence: None)
  Receive Date: 20120420
  Receipt Date: 20120416
  Transmission Date: 20120825
  Serious: No
  Sender: FDA-Public Use
  Company Number: US-B.I. PHARMACEUTICALS,INC./RIDGEFIELD-2012-BP-07191BP

PATIENT
  Sex: Female

DRUGS (8)
  1. CARDIZEM XT [Concomitant]
     Indication: PALPITATIONS
  2. COMBIVENT [Suspect]
     Indication: CHRONIC OBSTRUCTIVE PULMONARY DISEASE
     Dosage: 8 PUF
     Route: 055
     Dates: start: 19970901
  3. BENICAR [Concomitant]
     Indication: HYPERTENSION
     Dosage: 40 MG
     Route: 048
     Dates: start: 20070101
  4. ADVAIR DISKUS 100/50 [Concomitant]
     Indication: CHRONIC OBSTRUCTIVE PULMONARY DISEASE
  5. CARDIZEM XT [Concomitant]
     Indication: HYPERTENSION
     Dosage: 300 MG
     Route: 048
     Dates: start: 20060101
  6. ASTEPRO [Concomitant]
     Indication: SEASONAL ALLERGY
     Route: 045
     Dates: start: 20060101
  7. ADVAIR DISKUS 100/50 [Concomitant]
     Indication: SARCOIDOSIS
  8. ADVAIR DISKUS 100/50 [Concomitant]
     Indication: ASTHMA
     Route: 055
     Dates: start: 20060101

REACTIONS (1)
  - ASTHMA [None]
